FAERS Safety Report 12233180 (Version 2)
Quarter: 2016Q3

REPORT INFORMATION
  Report Type: Report from Study
  Country: IL (occurrence: IL)
  Receive Date: 20160404
  Receipt Date: 20160711
  Transmission Date: 20161109
  Serious: Yes (Death, Hospitalization, Other)
  Sender: FDA-Public Use
  Company Number: IL-AMGEN-ISRSL2016037719

PATIENT
  Sex: Male

DRUGS (1)
  1. NPLATE [Suspect]
     Active Substance: ROMIPLOSTIM
     Indication: IMMUNE THROMBOCYTOPENIC PURPURA
     Dosage: 500 MUG, QWK
     Route: 065

REACTIONS (3)
  - Hip fracture [Unknown]
  - Fall [Unknown]
  - General physical health deterioration [Fatal]

NARRATIVE: CASE EVENT DATE: 201603
